FAERS Safety Report 18668043 (Version 1)
Quarter: 2020Q4

REPORT INFORMATION
  Report Type: Other
  Country: IN (occurrence: IN)
  Receive Date: 20201228
  Receipt Date: 20201228
  Transmission Date: 20210114
  Serious: Yes (Other)
  Sender: FDA-Public Use
  Company Number: IN-GUARDIAN DRUG COMPANY-2103513

PATIENT
  Age: 20 Year
  Sex: Male

DRUGS (1)
  1. CHILDRENS IBUPROFEN [Suspect]
     Active Substance: IBUPROFEN
     Indication: TOOTHACHE
     Route: 048

REACTIONS (1)
  - Fixed eruption [Recovered/Resolved with Sequelae]
